FAERS Safety Report 6740780-3 (Version None)
Quarter: 2010Q2

REPORT INFORMATION
  Report Type: 
  Country: None (occurrence: None)
  Receive Date: 20100525
  Receipt Date: 20100525
  Transmission Date: 20101027
  Serious: Yes (Other)
  Sender: FDA-Public Use
  Company Number: None

PATIENT
  Age: 67 Year
  Sex: Female
  Weight: 66.6788 kg

DRUGS (3)
  1. LANSOPRAZOLE [Suspect]
     Indication: DYSPEPSIA
     Dosage: 30 MG 1 DAILY ORAL
     Route: 048
     Dates: start: 20100201, end: 20100301
  2. LANSOPRAZOLE [Suspect]
     Indication: GASTRITIS
     Dosage: 30 MG 1 DAILY ORAL
     Route: 048
     Dates: start: 20100201, end: 20100301
  3. LANSOPRAZOLE [Suspect]
     Indication: GASTROOESOPHAGEAL REFLUX DISEASE
     Dosage: 30 MG 1 DAILY ORAL
     Route: 048
     Dates: start: 20100201, end: 20100301

REACTIONS (5)
  - ABDOMINAL PAIN LOWER [None]
  - ABDOMINAL PAIN UPPER [None]
  - DEFAECATION URGENCY [None]
  - GASTROINTESTINAL PAIN [None]
  - HEADACHE [None]
